FAERS Safety Report 24657752 (Version 1)
Quarter: 2024Q4

REPORT INFORMATION
  Report Type: Spontaneous
  Country: US (occurrence: US)
  Receive Date: 20241125
  Receipt Date: 20241125
  Transmission Date: 20250115
  Serious: Yes (Death, Other)
  Sender: SUNOVION
  Company Number: US-SMPA-2024SPA005183

PATIENT

DRUGS (17)
  1. ORGOVYX [Suspect]
     Active Substance: RELUGOLIX
     Indication: Prostate cancer
     Dosage: 120 MG, QD, TAKE ONE TABLET BY MOUTH ONCE A DAY, SAME TIME EACH DAY
     Route: 048
  2. AMLODIPINE BESYLATE [Concomitant]
     Active Substance: AMLODIPINE BESYLATE
     Dosage: 10 MG
     Route: 065
  3. ASPIRIN [Concomitant]
     Active Substance: ASPIRIN
     Dosage: 81 MG
     Route: 065
  4. ATORVASTATIN CALCIUM [Concomitant]
     Active Substance: ATORVASTATIN CALCIUM
     Dosage: 10 MG
     Route: 065
  5. CAPSAICIN [Concomitant]
     Active Substance: CAPSAICIN
     Dosage: 0.025 %
     Route: 065
  6. ENALAPRIL MALEATE [Concomitant]
     Active Substance: ENALAPRIL MALEATE
     Dosage: 10 MG
     Route: 065
  7. HUMALOG [Concomitant]
     Active Substance: INSULIN LISPRO
     Dosage: 200 UNIT/ML
  8. LANTUS [Concomitant]
     Active Substance: INSULIN GLARGINE
     Dosage: 100 UNIT/M
     Route: 065
  9. LASIX [Concomitant]
     Active Substance: FUROSEMIDE
     Dosage: 40 MG
  10. METOPROLOL SUCCINATE [Concomitant]
     Active Substance: METOPROLOL SUCCINATE
     Dosage: 100 MG
     Route: 065
  11. OXYCODONE AND ACETAMINOPHEN [Concomitant]
     Active Substance: ACETAMINOPHEN\OXYCODONE HYDROCHLORIDE
     Dosage: 7.5-300 MG
     Route: 065
  12. SPIRONOLACTONE [Concomitant]
     Active Substance: SPIRONOLACTONE
     Dosage: 100 MG
     Route: 065
  13. TERAZOSIN HYDROCHLORIDE [Concomitant]
     Active Substance: TERAZOSIN HYDROCHLORIDE
     Dosage: 1 MG
     Route: 065
  14. TIZANIDINE HYDROCHLORIDE [Concomitant]
     Active Substance: TIZANIDINE HYDROCHLORIDE
     Dosage: 2 MG
     Route: 065
  15. TRIAMCINOLONE ACETONIDE [Concomitant]
     Active Substance: TRIAMCINOLONE ACETONIDE
     Dosage: 0.1 %
     Route: 065
  16. VALTOCO [Concomitant]
     Active Substance: DIAZEPAM
     Dosage: 10 MG DOSE NASAL LIQUID 10 MG/0.1ML
     Route: 045
  17. VITAMIN D [Concomitant]
     Active Substance: VITAMIN D NOS
     Dosage: 1.25 MG (50000 UT)
     Route: 065

REACTIONS (1)
  - Death [Fatal]
